FAERS Safety Report 5743653-8 (Version None)
Quarter: 2008Q2

REPORT INFORMATION
  Report Type: 
  Country: None (occurrence: None)
  Receive Date: 20080519
  Receipt Date: 20080519
  Transmission Date: 20081010
  Serious: No
  Sender: FDA-Public Use
  Company Number: None

PATIENT
  Sex: Female
  Weight: 61.1 kg

DRUGS (2)
  1. FLUOROURACIL [Suspect]
     Dosage: 3700 MG
  2. MITOMYCIN [Suspect]
     Dosage: 19 MG

REACTIONS (1)
  - PLATELET COUNT DECREASED [None]
